FAERS Safety Report 8963683 (Version 1)
Quarter: 2012Q4

REPORT INFORMATION
  Report Type: 
  Country: US (occurrence: US)
  Receive Date: 20121213
  Receipt Date: 20121213
  Transmission Date: 20130627
  Serious: Yes (Other)
  Sender: FDA-Public Use
  Company Number: CHPA2012US011482

PATIENT
  Age: 36 Year
  Sex: Female

DRUGS (3)
  1. EXCEDRIN MIGRAINE [Suspect]
     Indication: MIGRAINE
     Dosage: up to 6 as needed
     Route: 048
     Dates: start: 1999
  2. DILANTIN                                /AUS/ [Concomitant]
     Dosage: Unk, Unk
     Route: 065
  3. FAMOTIDINE [Concomitant]
     Dosage: 20 mg, UNK
     Route: 048

REACTIONS (3)
  - Cerebrovascular accident [Unknown]
  - Memory impairment [Not Recovered/Not Resolved]
  - Overdose [Unknown]
